FAERS Safety Report 22167236 (Version 1)
Quarter: 2023Q2

REPORT INFORMATION
  Report Type: Spontaneous
  Country: US (occurrence: US)
  Receive Date: 20230403
  Receipt Date: 20230403
  Transmission Date: 20230722
  Serious: No
  Sender: FDA-Public Use
  Company Number: US-GLAXOSMITHKLINE-USCH2023014324

PATIENT
  Age: 69 Year
  Sex: Female

DRUGS (7)
  1. NICORETTE [Suspect]
     Active Substance: NICOTINE
     Indication: Smoking cessation therapy
     Dosage: UNK
  2. NICODERM CQ [Suspect]
     Active Substance: NICOTINE
     Indication: Smoking cessation therapy
     Dosage: UNK
  3. NICODERM CQ [Suspect]
     Active Substance: NICOTINE
     Indication: Smoking cessation therapy
     Dosage: UNK
  4. NICODERM CQ [Suspect]
     Active Substance: NICOTINE
  5. NICODERM CQ [Suspect]
     Active Substance: NICOTINE
     Indication: Smoking cessation therapy
     Dosage: UNK
  6. NICODERM CQ [Suspect]
     Active Substance: NICOTINE
  7. NICODERM CQ [Suspect]
     Active Substance: NICOTINE

REACTIONS (5)
  - Burning sensation [Recovered/Resolved]
  - Pruritus [Recovered/Resolved]
  - Retching [Recovered/Resolved]
  - Hiccups [Recovered/Resolved]
  - Dysgeusia [Recovered/Resolved]
